FAERS Safety Report 24797949 (Version 1)
Quarter: 2025Q1

REPORT INFORMATION
  Report Type: Spontaneous
  Country: US (occurrence: US)
  Receive Date: 20250102
  Receipt Date: 20250102
  Transmission Date: 20250408
  Serious: No
  Sender: CELLTRION
  Company Number: US-CELLTRION INC.-2024US015212

PATIENT

DRUGS (2)
  1. TRUXIMA [Suspect]
     Active Substance: RITUXIMAB-ABBS
     Indication: Ureteric stenosis
     Dates: start: 20240202
  2. TRUXIMA [Suspect]
     Active Substance: RITUXIMAB-ABBS
     Dates: start: 20240524

REACTIONS (1)
  - Off label use [Unknown]
